FAERS Safety Report 19821191 (Version 1)
Quarter: 2021Q3

REPORT INFORMATION
  Report Type: Spontaneous
  Country: US (occurrence: US)
  Receive Date: 20210913
  Receipt Date: 20210913
  Transmission Date: 20211014
  Serious: Yes (Hospitalization)
  Sender: FDA-Public Use
  Company Number: None

PATIENT
  Sex: Female

DRUGS (13)
  1. MELOXICAM. [Concomitant]
     Active Substance: MELOXICAM
  2. ATORVASTATI N [Concomitant]
  3. LEFLUNOMIDE. [Concomitant]
     Active Substance: LEFLUNOMIDE
  4. ASPIRIN. [Concomitant]
     Active Substance: ASPIRIN
  5. TRAMADOL. [Concomitant]
     Active Substance: TRAMADOL
  6. NIFEDIPINE. [Concomitant]
     Active Substance: NIFEDIPINE
  7. LEVOTHYROXIN [Concomitant]
     Active Substance: LEVOTHYROXINE
  8. CELECOXIB. [Concomitant]
     Active Substance: CELECOXIB
  9. HUMIRA [Suspect]
     Active Substance: ADALIMUMAB
     Indication: RHEUMATOID ARTHRITIS
     Route: 058
     Dates: start: 20210202
  10. FUROSEMIDE. [Concomitant]
     Active Substance: FUROSEMIDE
  11. STIMULANT [Concomitant]
     Active Substance: UNSPECIFIED INGREDIENT
  12. PREGABLIN [Concomitant]
     Active Substance: PREGABALIN
  13. IRBESARTAN. [Concomitant]
     Active Substance: IRBESARTAN

REACTIONS (2)
  - Hip arthroplasty [None]
  - Therapy interrupted [None]
